FAERS Safety Report 9735220 (Version 2)
Quarter: 2013Q4

REPORT INFORMATION
  Report Type: Spontaneous
  Country: GT (occurrence: GT)
  Receive Date: 20131206
  Receipt Date: 20131206
  Transmission Date: 20140711
  Serious: Yes (Hospitalization)
  Sender: FDA-Public Use
  Company Number: GT-SANOFI-AVENTIS-CERZ-1003129

PATIENT
  Age: 22 Year
  Sex: Female
  Weight: 48.6 kg

DRUGS (1)
  1. CEREZYME [Suspect]
     Indication: GAUCHER^S DISEASE
     Dosage: DOSE : 60 U, Q2W; 1.2 U/KG, Q2W DOSE:1.2 UNIT(S)/KILOGRAM BODYWEIGHT
     Route: 042
     Dates: start: 200701

REACTIONS (3)
  - Anaemia [Recovering/Resolving]
  - Exposure during pregnancy [Unknown]
  - Thrombocytopenia [Recovering/Resolving]
